FAERS Safety Report 17682480 (Version 1)
Quarter: 2020Q2

REPORT INFORMATION
  Report Type: Spontaneous
  Country: CA (occurrence: CA)
  Receive Date: 20200418
  Receipt Date: 20200418
  Transmission Date: 20200714
  Serious: Yes (Death, Other)
  Sender: FDA-Public Use
  Company Number: CA-TEVA-2020-CA-1223792

PATIENT
  Age: 62 Year
  Sex: Male

DRUGS (1)
  1. MORPHINE SULFATE. [Suspect]
     Active Substance: MORPHINE SULFATE
     Indication: PRODUCT USED FOR UNKNOWN INDICATION
     Route: 065

REACTIONS (8)
  - Drug abuse [Fatal]
  - Depression [Fatal]
  - Toxicity to various agents [Fatal]
  - Intentional overdose [Fatal]
  - Somnolence [Fatal]
  - Suicidal ideation [Fatal]
  - Drug dependence [Fatal]
  - Decreased appetite [Fatal]
